FAERS Safety Report 9780967 (Version 2)
Quarter: 2014Q1

REPORT INFORMATION
  Report Type: Spontaneous
  Country: US (occurrence: None)
  Receive Date: 20131220
  Receipt Date: 20140129
  Transmission Date: 20141002
  Serious: Yes (Hospitalization)
  Sender: FDA-Public Use
  Company Number: 13AE030

PATIENT
  Sex: Female

DRUGS (2)
  1. WALGREENS ACETAMINOHPEN\PHENYLEPHRINE HCL [Suspect]
     Indication: PULMONARY CONGESTION
     Dosage: 3 BY MOUTH
     Dates: start: 20131118
  2. AMOXICILLIN [Concomitant]

REACTIONS (3)
  - Vertigo [None]
  - Deafness [None]
  - Vomiting [None]
